FAERS Safety Report 7371674-0 (Version None)
Quarter: 2011Q1

REPORT INFORMATION
  Report Type: 
  Country: None (occurrence: None)
  Receive Date: 20110314
  Receipt Date: 20110218
  Transmission Date: 20110831
  Serious: Yes (Other)
  Sender: FDA-Public Use
  Company Number: 2280705-2011-00013

PATIENT

DRUGS (1)
  1. ORAJEL MAXIMUM STRENGTH ORAL PAIN RELEIVER FOR MOUTH SORES [Suspect]
     Indication: APHTHOUS STOMATITIS
     Dosage: ORAL APPLICATION
     Route: 048
     Dates: start: 20110212

REACTIONS (3)
  - HEADACHE [None]
  - LOSS OF CONSCIOUSNESS [None]
  - HEAD INJURY [None]
